FAERS Safety Report 7838056-6 (Version None)
Quarter: 2011Q4

REPORT INFORMATION
  Report Type: 
  Country: None (occurrence: None)
  Receive Date: 20111024
  Receipt Date: 20111004
  Transmission Date: 20120403
  Serious: No
  Sender: FDA-Public Use
  Company Number: US-BAYER-2011-077407

PATIENT
  Age: 52 Year
  Sex: Female
  Weight: 81.633 kg

DRUGS (8)
  1. MAGNEVIST [Suspect]
     Indication: NUCLEAR MAGNETIC RESONANCE IMAGING BRAIN
     Dosage: 16 ML, ONCE
     Route: 042
     Dates: start: 20110824, end: 20110824
  2. IMURAN [Concomitant]
  3. OMEPRAZOLE [Concomitant]
  4. MAGNEVIST [Suspect]
     Indication: NUCLEAR MAGNETIC RESONANCE IMAGING
  5. CLONAZEPAM [Concomitant]
  6. LEVOTHYROXINE SODIUM [Concomitant]
  7. AMLODIPINE [Concomitant]
  8. BUPROPION HYDROCHLORIDE [Concomitant]

REACTIONS (1)
  - SCLERAL HYPERAEMIA [None]
